FAERS Safety Report 11622592 (Version 1)
Quarter: 2015Q4

REPORT INFORMATION
  Report Type: Spontaneous
  Country: US (occurrence: US)
  Receive Date: 20151013
  Receipt Date: 20151013
  Transmission Date: 20160304
  Serious: No
  Sender: FDA-Public Use
  Company Number: US-JNJFOC-20150514836

PATIENT
  Age: 26 Year
  Sex: Male
  Weight: 69.4 kg

DRUGS (2)
  1. UNSPECIFIED ANTI-NAUSEA DRUGS [Concomitant]
     Indication: NAUSEA
     Route: 065
  2. TYLENOL EXTRA STRENGTH [Suspect]
     Active Substance: ACETAMINOPHEN
     Indication: PYREXIA
     Route: 048

REACTIONS (2)
  - Hypersomnia [Recovered/Resolved]
  - Fatigue [Recovered/Resolved]
